FAERS Safety Report 7621529-9 (Version None)
Quarter: 2011Q3

REPORT INFORMATION
  Report Type: 
  Country: None (occurrence: None)
  Receive Date: 20110719
  Receipt Date: 20110713
  Transmission Date: 20111222
  Serious: Yes (Other)
  Sender: FDA-Public Use
  Company Number: US-BAYER-2011-062226

PATIENT
  Age: 74 Year
  Sex: Female
  Weight: 70.295 kg

DRUGS (1)
  1. CITRACAL PETITES [Suspect]
     Indication: VITAMIN SUPPLEMENTATION
     Dosage: 3 DF, BID
     Route: 048
     Dates: end: 20110712

REACTIONS (2)
  - FOREIGN BODY [None]
  - DYSPNOEA [None]
